FAERS Safety Report 16586092 (Version 1)
Quarter: 2019Q3

REPORT INFORMATION
  Report Type: Spontaneous
  Country: US (occurrence: US)
  Receive Date: 20190717
  Receipt Date: 20190717
  Transmission Date: 20191004
  Serious: Yes (Other)
  Sender: FDA-Public Use
  Company Number: US-BAYER-2019-133565

PATIENT
  Age: 66 Year
  Sex: Female
  Weight: 160 kg

DRUGS (1)
  1. MAGNEVIST [Suspect]
     Active Substance: GADOPENTETATE DIMEGLUMINE
     Indication: NUCLEAR MAGNETIC RESONANCE IMAGING
     Dosage: 1.5 ML, ONCE, INFUSION TIME: 85SEC
     Dates: start: 20160322, end: 20160322

REACTIONS (15)
  - Balance disorder [None]
  - Mental disorder [None]
  - Loss of consciousness [None]
  - Colonoscopy [None]
  - Neck surgery [None]
  - Cognitive disorder [None]
  - Tooth extraction [None]
  - Skin hypertrophy [None]
  - Headache [None]
  - Tinnitus [None]
  - Pain [None]
  - Spinal operation [None]
  - Dizziness [None]
  - Oedema [None]
  - Amnesia [None]

NARRATIVE: CASE EVENT DATE: 2016
